FAERS Safety Report 26165693 (Version 1)
Quarter: 2025Q4

REPORT INFORMATION
  Report Type: Spontaneous
  Country: EU (occurrence: EU)
  Receive Date: 20251216
  Receipt Date: 20251216
  Transmission Date: 20260117
  Serious: Yes (Other)
  Sender: MYLAN
  Company Number: EU-002147023-PHHY2015ES135045

PATIENT
  Age: 16 Year
  Sex: Male

DRUGS (8)
  1. CYCLOSPORINE [Interacting]
     Active Substance: CYCLOSPORINE
     Indication: Bone marrow failure
     Dosage: 2.9 MILLIGRAM/KILOGRAM, QD
  2. CYCLOSPORINE [Interacting]
     Active Substance: CYCLOSPORINE
     Dosage: 2.5 MILLIGRAM/KILOGRAM, QD (2.5 MG/KG, QD)
  3. CYCLOSPORINE [Interacting]
     Active Substance: CYCLOSPORINE
     Dosage: 1 MILLIGRAM/KILOGRAM, QD (1 MG/KG, QD)
  4. CYCLOSPORINE [Interacting]
     Active Substance: CYCLOSPORINE
     Dosage: 2.8 MILLIGRAM/KILOGRAM, QD (2.8 MG/KG, QD)
  5. CYCLOSPORINE [Interacting]
     Active Substance: CYCLOSPORINE
     Dosage: 30 MILLIGRAM, BID (30 MG, Q12H))
  6. ELTROMBOPAG OLAMINE [Interacting]
     Active Substance: ELTROMBOPAG OLAMINE
     Indication: Thrombocytopenia
     Dosage: 50 MILLIGRAM, QD (50 MG, QD)
     Dates: start: 20150312
  7. ELTROMBOPAG OLAMINE [Interacting]
     Active Substance: ELTROMBOPAG OLAMINE
     Dosage: 150 MILLIGRAM, QD (150 MG, QD)
  8. VORICONAZOLE [Concomitant]
     Active Substance: VORICONAZOLE
     Indication: Product used for unknown indication
     Dosage: UNK

REACTIONS (3)
  - Renal failure [Recovered/Resolved]
  - Platelet count increased [Unknown]
  - Drug interaction [Unknown]
